FAERS Safety Report 7721719-0 (Version None)
Quarter: 2011Q3

REPORT INFORMATION
  Report Type: 
  Country: None (occurrence: None)
  Receive Date: 20110831
  Receipt Date: 20110824
  Transmission Date: 20111222
  Serious: Yes (Other)
  Sender: FDA-Public Use
  Company Number: JP-GLAXOSMITHKLINE-B0742750A

PATIENT
  Sex: Female

DRUGS (8)
  1. LANSOPRAZOLE [Concomitant]
     Route: 065
  2. PAXIL [Suspect]
     Dosage: 20MG PER DAY
     Route: 048
     Dates: start: 20110805
  3. MAGMITT [Concomitant]
     Route: 048
  4. PAXIL [Suspect]
     Indication: PRODUCT USED FOR UNKNOWN INDICATION
     Dosage: 10MG PER DAY
     Route: 048
     Dates: start: 20110701, end: 20110804
  5. CALBLOCK [Concomitant]
     Route: 048
  6. DIOVAN [Concomitant]
     Route: 048
  7. SENNOSIDE [Concomitant]
     Route: 048
  8. TRICHLORMETHIAZIDE [Concomitant]
     Route: 048

REACTIONS (1)
  - LOSS OF CONSCIOUSNESS [None]
